FAERS Safety Report 21636058 (Version 11)
Quarter: 2024Q2

REPORT INFORMATION
  Report Type: Report from Study
  Country: US (occurrence: US)
  Receive Date: 20221123
  Receipt Date: 20240508
  Transmission Date: 20240716
  Serious: Yes (Hospitalization, Other)
  Sender: FDA-Public Use
  Company Number: US-TAKEDA-2022TUS088260

PATIENT
  Age: 78 Year
  Sex: Female

DRUGS (6)
  1. VON WILLEBRAND FACTOR (RECOMBINANT) [Suspect]
     Active Substance: VON WILLEBRAND FACTOR (RECOMBINANT)
     Indication: Product used for unknown indication
     Dosage: 3385 INTERNATIONAL UNIT
     Route: 065
  2. VON WILLEBRAND FACTOR (RECOMBINANT) [Suspect]
     Active Substance: VON WILLEBRAND FACTOR (RECOMBINANT)
     Dosage: 3385 INTERNATIONAL UNIT, Q2WEEKS
     Route: 042
  3. VON WILLEBRAND FACTOR (RECOMBINANT) [Suspect]
     Active Substance: VON WILLEBRAND FACTOR (RECOMBINANT)
     Dosage: 3240 INTERNATIONAL UNIT, 2/WEEK
     Route: 042
  4. VON WILLEBRAND FACTOR (RECOMBINANT) [Suspect]
     Active Substance: VON WILLEBRAND FACTOR (RECOMBINANT)
     Dosage: 3515 INTERNATIONAL UNIT
     Route: 065
  5. VON WILLEBRAND FACTOR (RECOMBINANT) [Suspect]
     Active Substance: VON WILLEBRAND FACTOR (RECOMBINANT)
     Dosage: 3515 INTERNATIONAL UNIT, 2/WEEK
     Route: 050
  6. VON WILLEBRAND FACTOR (RECOMBINANT) [Suspect]
     Active Substance: VON WILLEBRAND FACTOR (RECOMBINANT)
     Dosage: 3400 INTERNATIONAL UNIT
     Route: 050

REACTIONS (9)
  - Volvulus [Unknown]
  - Anaemia [Unknown]
  - COVID-19 [Unknown]
  - Fall [Unknown]
  - Internal haemorrhage [Unknown]
  - Procedural pain [Not Recovered/Not Resolved]
  - Upper limb fracture [Unknown]
  - Diarrhoea [Recovered/Resolved]
  - Nausea [Recovered/Resolved]

NARRATIVE: CASE EVENT DATE: 20221121
